FAERS Safety Report 13319190 (Version 3)
Quarter: 2017Q1

REPORT INFORMATION
  Report Type: Report from Study
  Country: CA (occurrence: CA)
  Receive Date: 20170310
  Receipt Date: 20170317
  Transmission Date: 20170428
  Serious: Yes (Hospitalization)
  Sender: FDA-Public Use
  Company Number: PHHY2014CA064663

PATIENT
  Age: 56 Year
  Sex: Female

DRUGS (3)
  1. SANDOSTATIN LAR DEPOT [Suspect]
     Active Substance: OCTREOTIDE ACETATE
     Indication: PANCREATIC NEUROENDOCRINE TUMOUR METASTATIC
     Dosage: 30 MG, QMO
     Route: 030
     Dates: start: 20140520
  2. AFINITOR [Suspect]
     Active Substance: EVEROLIMUS
     Indication: PANCREATIC NEUROENDOCRINE TUMOUR METASTATIC
     Dosage: 10 MG, QD
     Route: 048
     Dates: start: 20140520, end: 20170307
  3. AFINITOR [Suspect]
     Active Substance: EVEROLIMUS
     Dosage: 5 MG QD
     Route: 048
     Dates: start: 20170308

REACTIONS (21)
  - Crying [Unknown]
  - Stress [Unknown]
  - Abdominal tenderness [Unknown]
  - Injection site erythema [Recovered/Resolved]
  - Fatigue [Unknown]
  - Blood pressure increased [Unknown]
  - Injection site inflammation [Recovered/Resolved]
  - Cholelithiasis [Unknown]
  - Blood glucose decreased [Unknown]
  - Injection site pain [Recovered/Resolved]
  - Emotional disorder [Unknown]
  - Blood pressure systolic increased [Unknown]
  - Fear [Unknown]
  - Feeling abnormal [Unknown]
  - Injection site dermatitis [Recovered/Resolved]
  - Jaundice [Unknown]
  - Anxiety [Unknown]
  - Bronchitis [Recovered/Resolved]
  - Eczema [Unknown]
  - Weight abnormal [Unknown]
  - Abdominal distension [Unknown]

NARRATIVE: CASE EVENT DATE: 201505
